FAERS Safety Report 4305159-2 (Version None)
Quarter: 2004Q1

REPORT INFORMATION
  Report Type: 
  Country: None (occurrence: None)
  Receive Date: 20040225
  Receipt Date: 20040225
  Transmission Date: 20041129
  Serious: Yes (Hospitalization)
  Sender: FDA-Public Use
  Company Number: None

PATIENT
  Sex: Male
  Weight: 127 kg

DRUGS (12)
  1. IMMUNE GLOBULIN INTRAVENOUS (HUMAN) [Suspect]
     Indication: CHRONIC INFLAMMATORY DEMYELINATING POLYRADICULONEUROPATHY
     Dosage: 96 G X 1 IV
     Route: 042
     Dates: start: 20031104, end: 20031105
  2. ACETAMINOPHEN [Concomitant]
  3. ALBUTEROL [Concomitant]
  4. ASPIRIN [Concomitant]
  5. DIPHENHYDRAMINE HCL [Concomitant]
  6. GABAPENTIN [Concomitant]
  7. HEPARIN [Concomitant]
  8. IPRATROPIUM BROMIDE [Concomitant]
  9. LOSARTAN [Concomitant]
  10. MULTI-VITAMINS [Concomitant]
  11. POTASSIUM CHLORIDE [Concomitant]
  12. PREDNISONE [Concomitant]

REACTIONS (9)
  - ATRIAL FIBRILLATION [None]
  - BLOOD CREATININE INCREASED [None]
  - BLOOD UREA INCREASED [None]
  - HAEMODIALYSIS [None]
  - OXYGEN SATURATION DECREASED [None]
  - PULMONARY OEDEMA [None]
  - RENAL TUBULAR NECROSIS [None]
  - STAPHYLOCOCCAL BACTERAEMIA [None]
  - URINE OUTPUT DECREASED [None]
